FAERS Safety Report 9183638 (Version 1)
Quarter: 2013Q1

REPORT INFORMATION
  Report Type: Spontaneous
  Country: US (occurrence: US)
  Receive Date: 20130322
  Receipt Date: 20130322
  Transmission Date: 20140127
  Serious: No
  Sender: FDA-Public Use
  Company Number: US-BRISTOL-MYERS SQUIBB COMPANY-16572141

PATIENT
  Age: 56 Year
  Sex: Female
  Weight: 87.98 kg

DRUGS (1)
  1. ERBITUX [Suspect]
     Indication: COLON CANCER

REACTIONS (3)
  - Diarrhoea [Unknown]
  - Constipation [Unknown]
  - Rash [Unknown]
